FAERS Safety Report 12037377 (Version 1)
Quarter: 2016Q1

REPORT INFORMATION
  Report Type: Spontaneous
  Country: US (occurrence: None)
  Receive Date: 20160205
  Receipt Date: 20160205
  Transmission Date: 20160526
  Serious: Yes (Life-Threatening, Hospitalization)
  Sender: FDA-Public Use
  Company Number: None

PATIENT
  Age: 22 Year
  Sex: Female

DRUGS (1)
  1. MIRENA [Suspect]
     Active Substance: LEVONORGESTREL

REACTIONS (6)
  - Abdominal pain upper [None]
  - Dehydration [None]
  - Drug hypersensitivity [None]
  - Mastitis [None]
  - Inflammation [None]
  - Vomiting [None]

NARRATIVE: CASE EVENT DATE: 20160201
